FAERS Safety Report 9407909 (Version 2)
Quarter: 2013Q3

REPORT INFORMATION
  Report Type: Spontaneous
  Country: DE (occurrence: None)
  Receive Date: 20130426
  Receipt Date: 20130703
  Transmission Date: 20140515
  Serious: Yes (Hospitalization, Other)
  Sender: FDA-Public Use
  Company Number: 1303-316

PATIENT
  Age: 55 Year
  Sex: Male
  Weight: 73 kg

DRUGS (11)
  1. VEGF TRAP-EYE (INJECTION) (VEGF TRAP) [Suspect]
     Indication: DIABETIC RETINAL OEDEMA
     Route: 031
     Dates: start: 20110830
  2. AMARYL (GLIMEPIRIDE) [Suspect]
     Indication: DIABETES MELLITUS
     Dosage: 0.5 MG, 2 IN 1 D, ORAL
     Route: 048
     Dates: start: 20110527
  3. AMLODIN [Suspect]
     Indication: HYPERTENSION
     Dosage: 2.5 MG, 1 IN 1 D, ORAL
     Route: 048
     Dates: start: 20120215
  4. BLOPRESS (CANDESARTAN CILEXETIL) [Suspect]
     Indication: HYPERTENSION
     Dosage: 8 MG, 1 IN 1 D, ORAL
     Route: 048
     Dates: start: 20120215
  5. METHYCOBAL (MECOBALAMIN) (TABLET) [Concomitant]
  6. ZYLORIC (ALLOPURINOL) (TABLET) [Concomitant]
  7. LIVALO (PITAVASTATIN CALCIUM) (TABLET) [Concomitant]
  8. PROBIOTICS (PROBIOTICS) (TABLET) [Concomitant]
  9. HERBAL PREPARATION (HERBAL EXTRACT NOS) (GRANULES) [Concomitant]
  10. BRONUCK (BROMFENAC SODIUM) (EYE DROPS) [Concomitant]
  11. BIO THREE (BACTERIA NOS) [Concomitant]

REACTIONS (6)
  - Subdural haematoma [None]
  - Loss of consciousness [None]
  - Vomiting [None]
  - Headache [None]
  - Dizziness [None]
  - Decreased appetite [None]
